FAERS Safety Report 9636555 (Version 1)
Quarter: 2013Q4

REPORT INFORMATION
  Report Type: Spontaneous
  Country: IT (occurrence: IT)
  Receive Date: 20131021
  Receipt Date: 20131021
  Transmission Date: 20140711
  Serious: Yes (Hospitalization)
  Sender: FDA-Public Use
  Company Number: IT-MYLANLABS-2013S1023008

PATIENT
  Age: 93 Year
  Sex: Female

DRUGS (7)
  1. PAROXETINE [Suspect]
     Indication: DEPRESSION
     Route: 048
     Dates: start: 20130101, end: 20130616
  2. NATRILIX [Suspect]
     Indication: HYPERTENSION
     Route: 048
     Dates: start: 20130101, end: 20130616
  3. OMEPRAZOLE [Concomitant]
     Indication: PRODUCT USED FOR UNKNOWN INDICATION
  4. FOLIC ACID [Concomitant]
     Indication: PRODUCT USED FOR UNKNOWN INDICATION
  5. TIKLID [Concomitant]
     Indication: PRODUCT USED FOR UNKNOWN INDICATION
  6. ARIMIDEX [Concomitant]
     Indication: PRODUCT USED FOR UNKNOWN INDICATION
  7. TAVOR [Concomitant]
     Indication: PRODUCT USED FOR UNKNOWN INDICATION

REACTIONS (3)
  - Oedema peripheral [Recovered/Resolved]
  - Electrolyte imbalance [Recovered/Resolved]
  - Cardiac failure [Recovered/Resolved]
